FAERS Safety Report 14258021 (Version 1)
Quarter: 2017Q4

REPORT INFORMATION
  Report Type: Spontaneous
  Country: US (occurrence: None)
  Receive Date: 20171206
  Receipt Date: 20171206
  Transmission Date: 20180321
  Serious: Yes (Hospitalization)
  Sender: FDA-Public Use
  Company Number: None

PATIENT
  Sex: Male

DRUGS (1)
  1. CAPECITABINE 500 MG ACCORD HEALTHCARE [Suspect]
     Active Substance: CAPECITABINE
     Indication: COLON CANCER
     Dosage: 500MG DAILY FOR 7 DAYS ON  ORAL
     Route: 048
     Dates: start: 20171012

REACTIONS (2)
  - Hospitalisation [None]
  - Therapy change [None]
